FAERS Safety Report 17145350 (Version 1)
Quarter: 2019Q4

REPORT INFORMATION
  Report Type: Spontaneous
  Country: US (occurrence: US)
  Receive Date: 20191211
  Receipt Date: 20191211
  Transmission Date: 20200122
  Serious: No
  Sender: FDA-Public Use
  Company Number: None

PATIENT
  Age: 67 Year
  Sex: Female
  Weight: 73.48 kg

DRUGS (1)
  1. REPATHA [Suspect]
     Active Substance: EVOLOCUMAB
     Indication: HYPERLIPIDAEMIA
     Dosage: ?          OTHER FREQUENCY:EVERY 14 DAYS;?
     Route: 058
     Dates: start: 20191207

REACTIONS (8)
  - Rhinorrhoea [None]
  - Oropharyngeal pain [None]
  - Pain [None]
  - Back pain [None]
  - Feeling abnormal [None]
  - Sneezing [None]
  - Lacrimation increased [None]
  - Self-medication [None]

NARRATIVE: CASE EVENT DATE: 20191211
